FAERS Safety Report 20816626 (Version 5)
Quarter: 2023Q2

REPORT INFORMATION
  Report Type: Spontaneous
  Country: GB (occurrence: GB)
  Receive Date: 20220512
  Receipt Date: 20230511
  Transmission Date: 20230721
  Serious: Yes (Hospitalization, Other)
  Sender: FDA-Public Use
  Company Number: None

PATIENT
  Age: 10 Year
  Sex: Female

DRUGS (18)
  1. OMEPRAZOLE [Suspect]
     Active Substance: OMEPRAZOLE
     Indication: Product used for unknown indication
  2. ELEXACAFTOR\IVACAFTOR\TEZACAFTOR [Suspect]
     Active Substance: ELEXACAFTOR\IVACAFTOR\TEZACAFTOR
     Indication: Cystic fibrosis
     Dosage: 75MG/50MG/100MG.
     Dates: end: 20220429
  3. LINEZOLID [Suspect]
     Active Substance: LINEZOLID
     Indication: Product used for unknown indication
     Route: 065
     Dates: end: 20220429
  4. KALYDECO [Suspect]
     Active Substance: IVACAFTOR
     Indication: Cystic fibrosis
     Route: 048
  5. AMIKACIN [Concomitant]
     Active Substance: AMIKACIN
     Indication: Product used for unknown indication
  6. BEDAQUILINE [Concomitant]
     Active Substance: BEDAQUILINE
     Indication: Product used for unknown indication
  7. BECLOMETHASONE DIPROPIONATE [Concomitant]
     Active Substance: BECLOMETHASONE DIPROPIONATE
     Indication: Product used for unknown indication
     Dosage: PUFFS. VIA SPACER.
     Route: 055
  8. CHOLECALCIFEROL [Concomitant]
     Active Substance: CHOLECALCIFEROL
     Indication: Product used for unknown indication
     Dosage: WITH MEALS AND SNACKS AS DIRECTED BY DIETICIAN
     Route: 048
  9. CREON [Concomitant]
     Active Substance: PANCRELIPASE AMYLASE\PANCRELIPASE LIPASE\PANCRELIPASE PROTEASE
     Indication: Product used for unknown indication
     Dosage: WITH MEALS AND SNACKS AS DIRECTED BY DIETICIAN.
     Route: 048
  10. CYPROHEPTADINE [Concomitant]
     Active Substance: CYPROHEPTADINE
     Indication: Product used for unknown indication
     Dosage: 1/2 DAILY.
     Route: 048
  11. CYPROHEPTADINE [Concomitant]
     Active Substance: CYPROHEPTADINE
     Dosage: 4 MG
     Route: 048
  12. CHOLECALCIFEROL [Concomitant]
     Active Substance: CHOLECALCIFEROL
     Indication: Product used for unknown indication
     Dosage: AS DIRECTED BY DIABETES TEAM:ON MONDAYS, WEDNESDAYS AND FRIDAYS
     Route: 048
  13. INSULIN ASPART [Concomitant]
     Active Substance: INSULIN ASPART
     Indication: Product used for unknown indication
     Dosage: AS DIRECTED BY DIABETES TEAM.?ON MONDAYS, WEDNESDAYS AND FRIDAYS
     Route: 058
  14. MENADIOL [Concomitant]
     Active Substance: MENADIOL
     Indication: Product used for unknown indication
     Dosage: ON MONDAYS, WEDNESDAYS AND FRIDAYS.
     Route: 048
  15. PYRIDOXINE [Concomitant]
     Active Substance: PYRIDOXINE
     Indication: Product used for unknown indication
  16. SODIUM CHLORIDE [Concomitant]
     Active Substance: SODIUM CHLORIDE
     Indication: Product used for unknown indication
     Dosage: PUFFS. PRIOR TO BEDTIME VIA MDI AND SPACER
  17. ALBUTEROL [Concomitant]
     Active Substance: ALBUTEROL
     Indication: Product used for unknown indication
     Dosage: PUFFS. PRIOR TO BEDTIME VIA MDI AND SPACER.
     Route: 055
  18. VITAMIN D3 [Concomitant]
     Active Substance: CHOLECALCIFEROL
     Indication: Product used for unknown indication

REACTIONS (14)
  - Butterfly rash [Unknown]
  - Fungal infection [Unknown]
  - Vascular device infection [Unknown]
  - Personality change [Unknown]
  - Irritability [Unknown]
  - Mood swings [Unknown]
  - Disturbance in social behaviour [Unknown]
  - Arthritis [Unknown]
  - Emotional disorder [Unknown]
  - Mood altered [Unknown]
  - Crying [Unknown]
  - Drug hypersensitivity [Unknown]
  - Lupus-like syndrome [Unknown]
  - Systemic lupus erythematosus [Unknown]
